FAERS Safety Report 6079374-4 (Version None)
Quarter: 2009Q1

REPORT INFORMATION
  Report Type: 
  Country: None (occurrence: None)
  Receive Date: 20090216
  Receipt Date: 20090205
  Transmission Date: 20090719
  Serious: Yes (Death, Other)
  Sender: FDA-Public Use
  Company Number: JP-WYE-H08032709

PATIENT
  Sex: Male
  Weight: 53 kg

DRUGS (11)
  1. ZOSYN [Suspect]
     Indication: PNEUMONIA
     Route: 041
     Dates: start: 20090114, end: 20090128
  2. GASTER [Concomitant]
     Indication: GASTRITIS
     Route: 048
     Dates: start: 20000523, end: 20090128
  3. GASMOTIN [Concomitant]
     Indication: GASTRITIS
     Route: 048
     Dates: start: 20081212, end: 20090128
  4. MUCODYNE [Concomitant]
     Indication: PNEUMOCONIOSIS
     Route: 048
     Dates: start: 20000425, end: 20090128
  5. FOSAMAX [Concomitant]
     Indication: OSTEOPOROSIS
     Route: 048
     Dates: start: 20081114, end: 20090122
  6. MUCOSOLVAN [Concomitant]
     Indication: PNEUMOCONIOSIS
     Route: 048
     Dates: start: 20000425, end: 20090128
  7. SELBEX [Concomitant]
     Indication: GASTRITIS
     Route: 048
     Dates: start: 20000425, end: 20090128
  8. CODEINE PHOSPHATE [Concomitant]
     Indication: PNEUMONIA
     Route: 048
     Dates: start: 20090114, end: 20090128
  9. SALAZOSULFAPYRIDINE [Concomitant]
     Indication: PNEUMONIA
     Route: 048
     Dates: start: 20090114, end: 20090128
  10. PREDONINE [Concomitant]
     Indication: RHEUMATOID ARTHRITIS
     Route: 048
     Dates: start: 20081114, end: 20090128
  11. MEDICON [Concomitant]
     Indication: PNEUMOCONIOSIS
     Route: 048
     Dates: start: 20070606, end: 20090128

REACTIONS (2)
  - CARDIO-RESPIRATORY ARREST [None]
  - SHOCK [None]
